FAERS Safety Report 9266059 (Version 1)
Quarter: 2013Q2

REPORT INFORMATION
  Report Type: Spontaneous
  Country: DE (occurrence: DE)
  Receive Date: 20130501
  Receipt Date: 20130501
  Transmission Date: 20140414
  Serious: Yes (Other)
  Sender: FDA-Public Use
  Company Number: DE-AMGEN-DEUSP2013030141

PATIENT
  Sex: 0

DRUGS (1)
  1. ENBREL [Suspect]
     Dosage: 50 MG, UNK
     Route: 064

REACTIONS (2)
  - Exposure via father [Unknown]
  - Heart disease congenital [Unknown]
